FAERS Safety Report 7878712 (Version 6)
Quarter: 2013Q3

REPORT INFORMATION
  Report Type: Spontaneous
  Country: US (occurrence: US)
  Receive Date: 20110330
  Receipt Date: 20130703
  Transmission Date: 20140515
  Serious: Yes (Other)
  Sender: FDA-Public Use
  Company Number: US-JNJFOC-20110308225

PATIENT
  Age: 47 Year
  Sex: Female
  Weight: 66.23 kg

DRUGS (12)
  1. REMICADE [Suspect]
     Indication: RHEUMATOID ARTHRITIS
     Dosage: APPROXIMATELY 5 INFUSIONS IN TOTAL
     Route: 042
     Dates: start: 20100818, end: 20110118
  2. REMICADE [Suspect]
     Indication: RHEUMATOID ARTHRITIS
     Route: 042
     Dates: start: 201004
  3. METHOTREXATE [Concomitant]
     Indication: RHEUMATOID ARTHRITIS
     Route: 065
  4. SULFASALAZINE [Concomitant]
     Indication: RHEUMATOID ARTHRITIS
     Dosage: 1000-200 MG/DAY
     Route: 065
  5. HYDROXYCHLOROQUINE [Concomitant]
     Indication: RHEUMATOID ARTHRITIS
     Route: 065
  6. FOLIC ACID [Concomitant]
     Route: 065
  7. MOTRIN [Concomitant]
     Route: 065
  8. OMEPRAZOLE [Concomitant]
     Route: 065
  9. SYNTHROID [Concomitant]
     Route: 065
  10. ULTRACET [Concomitant]
     Route: 065
  11. EFFEXOR [Concomitant]
     Route: 065
  12. ESTRADIOL [Concomitant]
     Route: 065

REACTIONS (4)
  - Sepsis [Recovered/Resolved]
  - Pleural effusion [Recovered/Resolved]
  - Pneumonia [Recovered/Resolved]
  - Pneumococcal bacteraemia [Recovered/Resolved]
